FAERS Safety Report 13563371 (Version 4)
Quarter: 2017Q2

REPORT INFORMATION
  Report Type: Spontaneous
  Country: GB (occurrence: GB)
  Receive Date: 20170519
  Receipt Date: 20170626
  Transmission Date: 20170830
  Serious: No
  Sender: FDA-Public Use
  Company Number: PHHY2017GB074057

PATIENT
  Age: 33 Year
  Sex: Female

DRUGS (2)
  1. THALIDOMIDE [Suspect]
     Active Substance: THALIDOMIDE
     Indication: BEHCET^S SYNDROME
     Dosage: UNK
     Route: 065
  2. CICLOSPORIN [Suspect]
     Active Substance: CYCLOSPORINE
     Indication: BEHCET^S SYNDROME
     Route: 065

REACTIONS (3)
  - Lymphopenia [Unknown]
  - Product use in unapproved indication [Unknown]
  - Therapeutic response decreased [Unknown]
